FAERS Safety Report 15327434 (Version 1)
Quarter: 2018Q3

REPORT INFORMATION
  Report Type: Spontaneous
  Country: US (occurrence: US)
  Receive Date: 20180828
  Receipt Date: 20180828
  Transmission Date: 20181010
  Serious: No
  Sender: FDA-Public Use
  Company Number: US-ALLERGAN-1816251US

PATIENT
  Sex: Female
  Weight: 53.7 kg

DRUGS (3)
  1. ESCITALOPRAM OXALATE UNK [Suspect]
     Active Substance: ESCITALOPRAM OXALATE
     Indication: DEPRESSION
     Dosage: 10 MG, QD
     Route: 048
     Dates: start: 2017
  2. PREMPRO [Suspect]
     Active Substance: ESTROGENS, CONJUGATED\MEDROXYPROGESTERONE ACETATE
     Indication: HOT FLUSH
     Dosage: UNK
     Dates: end: 201707
  3. XANAX [Suspect]
     Active Substance: ALPRAZOLAM
     Indication: ANXIETY
     Dosage: 0.5 MG, BID
     Route: 048
     Dates: start: 20170201

REACTIONS (8)
  - Hot flush [Unknown]
  - Chills [Unknown]
  - Weight decreased [Unknown]
  - Depression [Unknown]
  - Amnesia [Unknown]
  - Drug ineffective [Unknown]
  - Decreased appetite [Unknown]
  - Disturbance in attention [Unknown]
